FAERS Safety Report 18081771 (Version 1)
Quarter: 2020Q3

REPORT INFORMATION
  Report Type: Report from Study
  Country: PL (occurrence: PL)
  Receive Date: 20200728
  Receipt Date: 20200728
  Transmission Date: 20201103
  Serious: Yes (Other)
  Sender: FDA-Public Use
  Company Number: PL-AMGEN-POLNI2020121236

PATIENT
  Age: 63 Year
  Sex: Female

DRUGS (2)
  1. AIMOVIG [Suspect]
     Active Substance: ERENUMAB-AOOE
     Indication: MIGRAINE
     Dosage: UNK
     Route: 058
  2. TRIPTAN [ZOLMITRIPTAN] [Concomitant]
     Active Substance: ZOLMITRIPTAN
     Indication: MIGRAINE
     Dosage: UNK
     Route: 065

REACTIONS (9)
  - Hyperactive pharyngeal reflex [Unknown]
  - Tinnitus [Unknown]
  - General physical health deterioration [Unknown]
  - Cardiac disorder [Unknown]
  - Dizziness [Unknown]
  - Brain neoplasm malignant [Unknown]
  - Swelling [Unknown]
  - Oral discomfort [Unknown]
  - Chest discomfort [Unknown]
